FAERS Safety Report 23508625 (Version 1)
Quarter: 2024Q1

REPORT INFORMATION
  Report Type: Spontaneous
  Country: US (occurrence: US)
  Receive Date: 20240209
  Receipt Date: 20240209
  Transmission Date: 20240410
  Serious: No
  Sender: FDA-Public Use
  Company Number: US-MYLANLABS-2024M1011368

PATIENT
  Sex: Female

DRUGS (22)
  1. GABAPENTIN [Suspect]
     Active Substance: GABAPENTIN
     Indication: Pain
     Dosage: 300 MILLIGRAM, QD
     Route: 065
     Dates: start: 20190610
  2. GABAPENTIN [Suspect]
     Active Substance: GABAPENTIN
     Indication: Migraine
  3. GABAPENTIN [Suspect]
     Active Substance: GABAPENTIN
     Indication: Anxiety
  4. NURTEC ODT [Concomitant]
     Active Substance: RIMEGEPANT SULFATE
     Indication: Migraine
     Dosage: UNK
     Route: 065
  5. DULOXETINE [Concomitant]
     Active Substance: DULOXETINE
     Indication: Fibromyalgia
     Dosage: 40 MILLIGRAM, QD
     Route: 065
     Dates: start: 20180814
  6. DULOXETINE [Concomitant]
     Active Substance: DULOXETINE
     Indication: Depression
  7. DULOXETINE [Concomitant]
     Active Substance: DULOXETINE
     Indication: Anxiety
  8. TRAMADOL [Concomitant]
     Active Substance: TRAMADOL\TRAMADOL HYDROCHLORIDE
     Indication: Rheumatoid arthritis
     Dosage: 50 MILLIGRAM, BID
     Route: 065
     Dates: start: 20211115
  9. PRAZOSIN [Concomitant]
     Active Substance: PRAZOSIN
     Indication: Post-traumatic stress disorder
     Dosage: 2 MILLIGRAM, 5XD
     Route: 065
     Dates: start: 20181016
  10. LEVOTHYROXINE [Concomitant]
     Active Substance: LEVOTHYROXINE\LEVOTHYROXINE SODIUM
     Indication: Hypothyroidism
     Dosage: 25 MILLIGRAM, 3XW (MONDAY, WEDNESDAY, FRIDAY)
     Route: 065
     Dates: start: 20180301
  11. TIZANIDINE [Concomitant]
     Active Substance: TIZANIDINE
     Indication: Muscle relaxant therapy
     Dosage: 4 MILLIGRAM, BID
     Route: 065
     Dates: start: 20210713
  12. OMEPRAZOLE [Concomitant]
     Active Substance: OMEPRAZOLE
     Indication: Gastrooesophageal reflux disease
     Dosage: 20 MILLIGRAM, QD
     Route: 065
     Dates: start: 2010
  13. MELOXICAM [Concomitant]
     Active Substance: MELOXICAM
     Indication: Pain
     Dosage: 15 MILLIGRAM, QD
     Route: 065
     Dates: start: 20170501
  14. MELOXICAM [Concomitant]
     Active Substance: MELOXICAM
     Indication: Inflammation
  15. DESIPRAMINE [Concomitant]
     Active Substance: DESIPRAMINE
     Indication: Sleep disorder
     Dosage: 20 MILLIGRAM, QD
     Route: 065
     Dates: start: 20180929
  16. DESIPRAMINE [Concomitant]
     Active Substance: DESIPRAMINE
     Indication: Depression
  17. DESIPRAMINE [Concomitant]
     Active Substance: DESIPRAMINE
     Indication: Migraine prophylaxis
  18. HUMIRA [Concomitant]
     Active Substance: ADALIMUMAB
     Indication: Rheumatoid arthritis
     Dosage: UNK
     Route: 065
     Dates: start: 20240117
  19. HYDROXYZINE [Concomitant]
     Active Substance: HYDROXYZINE HYDROCHLORIDE
     Indication: Anxiety
     Dosage: 50 MILLIGRAM, TID IF NEEDED
     Route: 065
     Dates: start: 20160201
  20. HYDROXYZINE [Concomitant]
     Active Substance: HYDROXYZINE HYDROCHLORIDE
     Indication: Sleep disorder
  21. HYDROXYZINE [Concomitant]
     Active Substance: HYDROXYZINE HYDROCHLORIDE
     Indication: Nausea
  22. CLONAZEPAM [Concomitant]
     Active Substance: CLONAZEPAM
     Indication: Anxiety
     Dosage: 1 MILLIGRAM, BID
     Route: 065
     Dates: start: 20061001

REACTIONS (1)
  - Off label use [Unknown]
